FAERS Safety Report 6186734-X (Version None)
Quarter: 2009Q2

REPORT INFORMATION
  Report Type: 
  Country: None (occurrence: None)
  Receive Date: 20090508
  Receipt Date: 20090508
  Transmission Date: 20091009
  Serious: Yes (Life-Threatening, Hospitalization)
  Sender: FDA-Public Use
  Company Number: None

PATIENT
  Age: 33 Year
  Sex: Female
  Weight: 83.9154 kg

DRUGS (1)
  1. FEMRING [Suspect]
     Indication: HORMONE REPLACEMENT THERAPY
     Dosage: VAGINAL RING PER 3 MONTHS VAG
     Route: 067
     Dates: start: 20090428, end: 20090502

REACTIONS (6)
  - ABDOMINAL PAIN [None]
  - BLINDNESS TRANSIENT [None]
  - HEADACHE [None]
  - LOSS OF CONSCIOUSNESS [None]
  - MOTOR DYSFUNCTION [None]
  - PAIN IN EXTREMITY [None]
